FAERS Safety Report 8887374 (Version 1)
Quarter: 2012Q4

REPORT INFORMATION
  Report Type: 
  Country: DE (occurrence: DE)
  Receive Date: 20121101
  Receipt Date: 20121101
  Transmission Date: 20130627
  Serious: Yes (Other)
  Sender: FDA-Public Use
  Company Number: DE-PFIZER INC-2012272352

PATIENT
  Age: 61 Year
  Sex: Female
  Weight: 61 kg

DRUGS (1)
  1. VENLAFAXINE HYDROCHLORIDE [Suspect]
     Indication: DEPRESSION
     Dosage: 75 mg, UNK
     Route: 048
     Dates: start: 20110901, end: 20120201

REACTIONS (4)
  - Fatigue [Not Recovered/Not Resolved]
  - Hypertension [Unknown]
  - Arrhythmia [Unknown]
  - Tinnitus [Unknown]
